FAERS Safety Report 8515490-2 (Version None)
Quarter: 2012Q3

REPORT INFORMATION
  Report Type: 
  Country: None (occurrence: None)
  Receive Date: 20120705
  Receipt Date: 20120619
  Transmission Date: 20120928
  Serious: Yes (Hospitalization)
  Sender: FDA-Public Use
  Company Number: TCI2012A03219

PATIENT
  Age: 62 Year
  Sex: Male

DRUGS (4)
  1. UREA DERIVATIVES [Concomitant]
  2. ACTOS [Suspect]
     Indication: TYPE 2 DIABETES MELLITUS
     Dosage: 15;30 MG (15;30 MG, 1 D), PER ORAL
     Route: 048
     Dates: start: 20080820
  3. ACTOS [Suspect]
     Indication: TYPE 2 DIABETES MELLITUS
     Dosage: 15;30 MG (15;30 MG, 1 D), PER ORAL
     Route: 048
     Dates: end: 20100514
  4. SULFONAMIDES [Concomitant]

REACTIONS (2)
  - LARGE INTESTINE CARCINOMA [None]
  - DIABETES MELLITUS INADEQUATE CONTROL [None]
